FAERS Safety Report 24294014 (Version 1)
Quarter: 2024Q3

REPORT INFORMATION
  Report Type: Spontaneous
  Country: US (occurrence: None)
  Receive Date: 20240906
  Receipt Date: 20240906
  Transmission Date: 20241017
  Serious: No
  Sender: DOMPE FARMACEUTICI
  Company Number: US-FARMAPROD-202403-1118

PATIENT
  Sex: Female

DRUGS (20)
  1. OXERVATE [Suspect]
     Active Substance: CENEGERMIN-BKBJ
     Indication: Neurotrophic keratopathy
     Route: 047
     Dates: start: 20240318
  2. VITAMIN B12 [Concomitant]
     Active Substance: CYANOCOBALAMIN
  3. CO Q-10-VITAMIN E-FISH OIL [Concomitant]
  4. PROBIOTIC and ACIDOPHILUS [Concomitant]
  5. FUROSEMIDE [Concomitant]
     Active Substance: FUROSEMIDE
     Dosage: 40 MG/5 ML
  6. ISOSORBIDE MONONITRATE [Concomitant]
     Active Substance: ISOSORBIDE MONONITRATE
     Dosage: EXTENDED RELEASE
  7. ASPIRIN-OMEPRAZOLE [Concomitant]
  8. CARVEDILOL [Concomitant]
     Active Substance: CARVEDILOL
  9. ALLOPURINOL [Concomitant]
     Active Substance: ALLOPURINOL
  10. ZETIA [Concomitant]
     Active Substance: EZETIMIBE
  11. LISINOPRIL [Concomitant]
     Active Substance: LISINOPRIL
  12. LEVOTHYROXINE SODIUM [Concomitant]
     Active Substance: LEVOTHYROXINE SODIUM
  13. VITAMIN D3 [Concomitant]
     Active Substance: CHOLECALCIFEROL
  14. PANTOPRAZOLE SODIUM [Concomitant]
     Active Substance: PANTOPRAZOLE SODIUM
  15. BILBERRY [Concomitant]
     Active Substance: BILBERRY
  16. FISH OIL [Concomitant]
     Active Substance: FISH OIL
  17. FAMOTIDINE [Concomitant]
     Active Substance: FAMOTIDINE
  18. HERBALS\TURMERIC [Concomitant]
     Active Substance: HERBALS\TURMERIC
  19. ULTIMATE EYE SUPPPORT SUPPLEMENT [Concomitant]
  20. VITAMIN MK7 [Concomitant]

REACTIONS (3)
  - Inappropriate schedule of product administration [Unknown]
  - Eye pain [Unknown]
  - Asthenopia [Unknown]
